FAERS Safety Report 24645509 (Version 2)
Quarter: 2025Q4

REPORT INFORMATION
  Report Type: Spontaneous
  Country: US (occurrence: US)
  Receive Date: 20241121
  Receipt Date: 20251121
  Transmission Date: 20260118
  Serious: No
  Sender: ALVOGEN
  Company Number: US-ALVOGEN-2024093317

PATIENT
  Sex: Female

DRUGS (1)
  1. TERIPARATIDE [Suspect]
     Active Substance: TERIPARATIDE
     Indication: Osteoporosis
     Dosage: STRENGTH: 250MCG/ML?EXPIRATION DATE: 31-MAR-2025.
     Route: 058
     Dates: start: 202401

REACTIONS (6)
  - Confusional state [Unknown]
  - Bone pain [Unknown]
  - Arthralgia [Unknown]
  - Dizziness [Unknown]
  - Device malfunction [Unknown]
  - Device operational issue [Unknown]

NARRATIVE: CASE EVENT DATE: 20240101
